FAERS Safety Report 8225238-7 (Version None)
Quarter: 2012Q1

REPORT INFORMATION
  Report Type: 
  Country: None (occurrence: None)
  Receive Date: 20120321
  Receipt Date: 20120312
  Transmission Date: 20120608
  Serious: Yes (Hospitalization, Disabling)
  Sender: FDA-Public Use
  Company Number: US-B.I. PHARMACEUTICALS,INC./RIDGEFIELD-2012-BP-03924BP

PATIENT
  Sex: Female
  Weight: 99.79 kg

DRUGS (9)
  1. PAXIL CONTROL RELEASE [Concomitant]
     Indication: SOCIAL PHOBIA
  2. PAXIL [Suspect]
     Indication: SOCIAL PHOBIA
  3. PAXIL CONTROL RELEASE [Concomitant]
     Indication: ANXIETY DISORDER
  4. GABAPENTIN [Concomitant]
     Indication: NEUROPATHY PERIPHERAL
     Route: 048
     Dates: start: 20111201
  5. PAXIL [Suspect]
     Indication: PANIC DISORDER
     Route: 048
     Dates: start: 19970101
  6. CLONAZEPAM [Concomitant]
     Indication: SOCIAL PHOBIA
     Route: 048
     Dates: start: 19970101
  7. TRADJENTA [Suspect]
     Indication: TYPE 2 DIABETES MELLITUS
     Dosage: 5 MG
     Route: 048
     Dates: start: 20120213, end: 20120214
  8. PAXIL [Suspect]
     Indication: ANXIETY DISORDER
  9. PAXIL CONTROL RELEASE [Concomitant]
     Indication: PANIC DISORDER
     Route: 048
     Dates: start: 19970101

REACTIONS (5)
  - SPEECH DISORDER [None]
  - EAR PAIN [None]
  - HEADACHE [None]
  - APHASIA [None]
  - HEMIPARESIS [None]
